FAERS Safety Report 17599886 (Version 3)
Quarter: 2020Q2

REPORT INFORMATION
  Report Type: Spontaneous
  Country: AU (occurrence: AU)
  Receive Date: 20200330
  Receipt Date: 20200410
  Transmission Date: 20200713
  Serious: Yes (Other)
  Sender: FDA-Public Use
  Company Number: AU-PFIZER INC-2020129788

PATIENT
  Sex: Male

DRUGS (1)
  1. CIPROFLOXACIN. [Suspect]
     Active Substance: CIPROFLOXACIN
     Indication: AFFECTIVE DISORDER
     Dosage: UNK, DAILY (1000 A DAY)

REACTIONS (13)
  - Parosmia [Unknown]
  - Victim of abuse [Unknown]
  - Hypoaesthesia [Unknown]
  - Product use in unapproved indication [Unknown]
  - Poisoning deliberate [Unknown]
  - Urinary tract disorder [Unknown]
  - Renal disorder [Unknown]
  - Off label use [Unknown]
  - Urethral stenosis [Unknown]
  - Intentional product misuse [Unknown]
  - Nervous system disorder [Not Recovered/Not Resolved]
  - Victim of sexual abuse [Unknown]
  - Sexual dysfunction [Unknown]
